FAERS Safety Report 20917759 (Version 2)
Quarter: 2022Q2

REPORT INFORMATION
  Report Type: Spontaneous
  Country: CA (occurrence: CA)
  Receive Date: 20220606
  Receipt Date: 20220618
  Transmission Date: 20220721
  Serious: Yes (Hospitalization, Other)
  Sender: FDA-Public Use
  Company Number: CA-AUROBINDO-AUR-APL-2022-019904

PATIENT
  Age: 78 Year
  Sex: Male

DRUGS (9)
  1. GABAPENTIN [Suspect]
     Active Substance: GABAPENTIN
     Indication: Sciatica
     Dosage: 900 MILLIGRAM (IN THE MORNING)
     Route: 065
  2. GABAPENTIN [Suspect]
     Active Substance: GABAPENTIN
     Dosage: 600 MILLIGRAM (IN THE AFTERNOON)
     Route: 065
  3. GABAPENTIN [Suspect]
     Active Substance: GABAPENTIN
     Dosage: 900 MILLIGRAM (AT NIGHT)
     Route: 065
  4. ACETAMINOPHEN\CODEINE PHOSPHATE [Suspect]
     Active Substance: ACETAMINOPHEN\CODEINE PHOSPHATE
     Indication: Sciatica
     Dosage: UNK, FOUR TIMES/DAY (1?2 TABLETS AS NEEDED UP)
     Route: 065
  5. KETAMINE [Suspect]
     Active Substance: KETAMINE
     Indication: Sciatica
     Dosage: 10 MILLIGRAM/HOUR
     Route: 042
  6. KETAMINE [Suspect]
     Active Substance: KETAMINE
     Dosage: 50 MILLIGRAM/HOUR
     Route: 042
  7. KETAMINE [Suspect]
     Active Substance: KETAMINE
     Dosage: 162 MILLIGRAM/HOUR
     Route: 042
     Dates: start: 20210421
  8. ZOPICLONE [Suspect]
     Active Substance: ZOPICLONE
     Indication: Sciatica
     Dosage: 7.5 MILLIGRAM (AT NIOGHT AS NEEDED)
     Route: 065
  9. ATORVASTATIN [Concomitant]
     Active Substance: ATORVASTATIN
     Indication: Hyperlipidaemia
     Dosage: 40 MILLIGRAM, DAILY
     Route: 065

REACTIONS (1)
  - Inappropriate antidiuretic hormone secretion [Recovered/Resolved]
